FAERS Safety Report 10362199 (Version 1)
Quarter: 2014Q1

REPORT INFORMATION
  Report Type: Spontaneous
  Country: US (occurrence: None)
  Receive Date: 20140306
  Receipt Date: 20140306
  Transmission Date: 20141002
  Serious: Yes (Hospitalization)
  Sender: FDA-Public Use
  Company Number: 163-21880-13084077

PATIENT
  Age: 80 Year
  Sex: Male

DRUGS (15)
  1. REVLIMID (LENALIDOMIDE) (5 MILLIGRAM, CAPSULES) [Suspect]
     Indication: MYELODYSPLASTIC SYNDROME
     Route: 048
     Dates: start: 201211, end: 201302
  2. NEXIUM [Concomitant]
  3. METOPROLOL [Concomitant]
  4. INEGY [Concomitant]
  5. AMLODIPINE (UNKNOWN) [Concomitant]
  6. FUROSEMIDE (UNKNOWN) [Concomitant]
  7. PLAVIX [Concomitant]
  8. TRICOR [Concomitant]
  9. VITAMIN B12 [Concomitant]
  10. VITAMIN B6 [Concomitant]
  11. FOLIC ACID (UNKNOWN) [Concomitant]
  12. SODIUM CHLORIDE [Concomitant]
  13. VITAMIN D [Concomitant]
  14. INFLUENZA VACCINE [Concomitant]
  15. ECOTRIN [Concomitant]

REACTIONS (1)
  - Pancytopenia [None]
